FAERS Safety Report 8531095-1 (Version None)
Quarter: 2012Q3

REPORT INFORMATION
  Report Type: 
  Country: None (occurrence: None)
  Receive Date: 20120723
  Receipt Date: 20120713
  Transmission Date: 20120928
  Serious: Yes (Other)
  Sender: FDA-Public Use
  Company Number: US-ASTRAZENECA-2012SE45073

PATIENT
  Age: 73 Year
  Sex: Female

DRUGS (10)
  1. VITAMIN B-12 [Concomitant]
     Indication: SUPPLEMENTATION THERAPY
     Route: 048
     Dates: start: 20090210
  2. CLARITIN [Concomitant]
     Indication: HYPERSENSITIVITY
     Dosage: DAILY PRN
     Route: 048
     Dates: start: 20110513
  3. SYNTHROID [Concomitant]
     Indication: HYPOTHYROIDISM
     Route: 048
  4. VIACTIV [Concomitant]
     Indication: SUPPLEMENTATION THERAPY
     Route: 048
  5. NEXIUM [Suspect]
     Indication: DYSPEPSIA
     Route: 048
     Dates: start: 20110201
  6. TYLENOL [Concomitant]
     Indication: PAIN
     Dosage: 650 MG, EVERY 6 HOUERS,  PRN RARE
     Route: 048
     Dates: start: 20110513
  7. LIPITOR [Concomitant]
     Indication: BLOOD CHOLESTEROL ABNORMAL
     Route: 048
     Dates: start: 20120301
  8. EVEROLIMUS [Concomitant]
     Route: 048
     Dates: start: 20120503
  9. OMEGA OIL [Concomitant]
     Indication: BLOOD CHOLESTEROL ABNORMAL
     Route: 048
     Dates: start: 20110609
  10. COLACE [Concomitant]
     Dosage: 100 MG, THREE TIMES DAILY, PRN
     Route: 048
     Dates: start: 20120518

REACTIONS (2)
  - OFF LABEL USE [None]
  - NEOPLASM MALIGNANT [None]
